FAERS Safety Report 6091512-6 (Version None)
Quarter: 2009Q1

REPORT INFORMATION
  Report Type: 
  Country: None (occurrence: None)
  Receive Date: 20090225
  Receipt Date: 20090216
  Transmission Date: 20090719
  Serious: Yes (Death)
  Sender: FDA-Public Use
  Company Number: CA-JNJFOC-20090204263

PATIENT
  Sex: Female
  Weight: 80 kg

DRUGS (16)
  1. REMICADE [Suspect]
     Route: 042
  2. REMICADE [Suspect]
     Route: 042
  3. REMICADE [Suspect]
     Route: 042
  4. REMICADE [Suspect]
     Route: 042
  5. REMICADE [Suspect]
     Route: 042
  6. REMICADE [Suspect]
     Indication: CROHN'S DISEASE
     Route: 042
  7. SOLU-MEDROL [Concomitant]
     Indication: PREMEDICATION
     Route: 042
  8. FOSAMAX [Concomitant]
  9. ASACOL [Concomitant]
  10. ISOPTIN [Concomitant]
  11. DIABETA [Concomitant]
  12. INSULIN [Concomitant]
  13. ANTIHYPERTENSIVE [Concomitant]
  14. METFORMIN [Concomitant]
  15. CENT [Concomitant]
  16. CALCIUM [Concomitant]

REACTIONS (1)
  - DEATH [None]
